FAERS Safety Report 17128990 (Version 1)
Quarter: 2019Q4

REPORT INFORMATION
  Report Type: Spontaneous
  Country: CN (occurrence: CN)
  Receive Date: 20191209
  Receipt Date: 20191209
  Transmission Date: 20200122
  Serious: Yes (Other)
  Sender: FDA-Public Use
  Company Number: CN-ROCHE-2485265

PATIENT
  Sex: Male
  Weight: 60 kg

DRUGS (3)
  1. OXALIPLATIN. [Suspect]
     Active Substance: OXALIPLATIN
     Indication: COLON CANCER
     Route: 041
     Dates: start: 20191122
  2. GLUCOSE [Concomitant]
     Active Substance: DEXTROSE
     Indication: COLON CANCER
     Route: 041
     Dates: start: 20191122
  3. CAPECITABINE. [Suspect]
     Active Substance: CAPECITABINE
     Indication: COLON CANCER
     Route: 048
     Dates: start: 20191122

REACTIONS (5)
  - Peripheral paralysis [Recovering/Resolving]
  - Bone marrow failure [Recovering/Resolving]
  - Vomiting [Recovering/Resolving]
  - Pigmentation disorder [Unknown]
  - Nausea [Recovering/Resolving]

NARRATIVE: CASE EVENT DATE: 20191123
